FAERS Safety Report 16907707 (Version 2)
Quarter: 2019Q4

REPORT INFORMATION
  Report Type: Spontaneous
  Country: US (occurrence: US)
  Receive Date: 20191011
  Receipt Date: 20191015
  Transmission Date: 20200122
  Serious: No
  Sender: FDA-Public Use
  Company Number: US-BAYER-2019-183816

PATIENT
  Sex: Female

DRUGS (1)
  1. GADAVIST [Suspect]
     Active Substance: GADOBUTROL
     Indication: SCAN WITH CONTRAST
     Dosage: UNK UNK, ONCE
     Dates: start: 20191007, end: 20191007

REACTIONS (3)
  - Contrast media allergy [Recovered/Resolved]
  - Urticaria [Recovered/Resolved]
  - Fatigue [None]

NARRATIVE: CASE EVENT DATE: 20191007
